FAERS Safety Report 6463753-7 (Version None)
Quarter: 2009Q4

REPORT INFORMATION
  Report Type: 
  Country: None (occurrence: None)
  Receive Date: 20091130
  Receipt Date: 20091130
  Transmission Date: 20100525
  Serious: No
  Sender: FDA-Public Use
  Company Number: None

PATIENT
  Sex: Male
  Weight: 120.9 kg

DRUGS (3)
  1. TAXOTERE [Suspect]
     Dosage: 175 MG
  2. CASODEX [Suspect]
     Dosage: 1050 MG
  3. LISINOPRIL [Concomitant]

REACTIONS (5)
  - APHASIA [None]
  - FATIGUE [None]
  - HYPONATRAEMIA [None]
  - HYPOPHAGIA [None]
  - LETHARGY [None]
